FAERS Safety Report 25212009 (Version 1)
Quarter: 2025Q2

REPORT INFORMATION
  Report Type: Spontaneous
  Country: IQ (occurrence: IQ)
  Receive Date: 20250418
  Receipt Date: 20250418
  Transmission Date: 20250716
  Serious: Yes (Death)
  Sender: ROCHE
  Company Number: IQ-ROCHE-10000258229

PATIENT
  Age: 54 Year
  Sex: Male

DRUGS (3)
  1. GLOFITAMAB [Suspect]
     Active Substance: GLOFITAMAB
     Indication: Diffuse large B-cell lymphoma
     Dosage: 6TH DOSE
     Route: 042
     Dates: start: 20241219, end: 20250327
  2. GLOFITAMAB [Suspect]
     Active Substance: GLOFITAMAB
     Route: 042
     Dates: start: 20250327
  3. OBINUTUZUMAB [Suspect]
     Active Substance: OBINUTUZUMAB
     Indication: Diffuse large B-cell lymphoma
     Route: 065
     Dates: start: 20241212

REACTIONS (6)
  - Death [Fatal]
  - Altered state of consciousness [Unknown]
  - Dyspnoea [Unknown]
  - Leukopenia [Unknown]
  - Anaemia [Unknown]
  - Lymphadenopathy [Unknown]

NARRATIVE: CASE EVENT DATE: 20250412
